FAERS Safety Report 4496295-9 (Version None)
Quarter: 2004Q3

REPORT INFORMATION
  Report Type: 
  Country: None (occurrence: None)
  Receive Date: 20040921
  Receipt Date: 20040301
  Transmission Date: 20050211
  Serious: Yes (Hospitalization)
  Sender: FDA-Public Use
  Company Number: 163-20785-04030038 (0)

PATIENT
  Age: 73 Year
  Sex: Male
  Weight: 75.3 kg

DRUGS (11)
  1. THALOMID [Suspect]
     Indication: PROSTATE CANCER
     Dosage: 50 MG, TWICE A DAY, ORAL
     Route: 048
     Dates: start: 20030802, end: 20040301
  2. DOCETAXEL (DOCETAXEL) (SOLUTION) [Suspect]
     Indication: PROSTATE CANCER
     Dosage: 25 MG, EVERY WEEK, INTRAVENOUS
     Route: 042
     Dates: start: 20030730, end: 20040223
  3. ZOMETA [Suspect]
     Dosage: Q MONTH
  4. LASIX [Concomitant]
  5. LISINOPRIL [Concomitant]
  6. POTASSIUM SR (POTASSIUM) (TABLETS) [Concomitant]
  7. DOCUSATE (DOCUSATE) [Concomitant]
  8. ZANTAC [Concomitant]
  9. ATIVAN [Concomitant]
  10. LACTULOSE [Concomitant]
  11. COUMADIN [Concomitant]

REACTIONS (9)
  - ABASIA [None]
  - ASTHENIA [None]
  - BRAIN MASS [None]
  - DISEASE PROGRESSION [None]
  - DYSPNOEA [None]
  - HEADACHE [None]
  - NAUSEA [None]
  - PNEUMONIA [None]
  - VOMITING [None]
